FAERS Safety Report 10164789 (Version 1)
Quarter: 2014Q2

REPORT INFORMATION
  Report Type: Spontaneous
  Country: US (occurrence: US)
  Receive Date: 20140510
  Receipt Date: 20140510
  Transmission Date: 20141212
  Serious: No
  Sender: FDA-Public Use
  Company Number: US-BRISTOL-MYERS SQUIBB COMPANY-19627736

PATIENT
  Age: 64 Year
  Sex: Female
  Weight: 91.15 kg

DRUGS (4)
  1. BYDUREON  2MG SUSPENSION [Suspect]
     Indication: TYPE 2 DIABETES MELLITUS
  2. BYETTA [Suspect]
     Dosage: DOSE INCREASED-5MCG TWICE DAILY
  3. AMARYL [Suspect]
  4. NEURONTIN [Suspect]

REACTIONS (4)
  - Diabetic neuropathy [Unknown]
  - Blood glucose increased [Unknown]
  - Weight increased [Unknown]
  - Drug prescribing error [Unknown]
